FAERS Safety Report 5025189-5 (Version None)
Quarter: 2006Q2

REPORT INFORMATION
  Report Type: 
  Country: None (occurrence: None)
  Receive Date: 20060613
  Receipt Date: 20060504
  Transmission Date: 20061013
  Serious: Yes (Other)
  Sender: FDA-Public Use
  Company Number: 445193

PATIENT
  Age: 64 Year
  Sex: Male

DRUGS (6)
  1. EUCARDIC [Suspect]
     Route: 048
     Dates: start: 20060410, end: 20060413
  2. CARDURA [Concomitant]
  3. ASPIRIN [Concomitant]
     Indication: CORONARY ARTERY DISEASE
  4. EMCOR [Concomitant]
  5. LIPITOR [Concomitant]
  6. ALLOPURINOL [Concomitant]

REACTIONS (7)
  - BLOOD PRESSURE INCREASED [None]
  - DYSPNOEA [None]
  - HYPERTENSION [None]
  - INSOMNIA [None]
  - LEFT VENTRICULAR FAILURE [None]
  - MALAISE [None]
  - TACHYCARDIA [None]
